FAERS Safety Report 15838650 (Version 1)
Quarter: 2018Q4

REPORT INFORMATION
  Report Type: Spontaneous
  Country: US (occurrence: US)
  Receive Date: 20181221
  Receipt Date: 20181221
  Transmission Date: 20190205
  Serious: Yes (Hospitalization)
  Sender: FDA-Public Use
  Company Number: None

PATIENT
  Age: 61 Year
  Sex: Male
  Weight: 79.83 kg

DRUGS (1)
  1. GABAPENTIN. [Suspect]
     Active Substance: GABAPENTIN
     Indication: BIPOLAR I DISORDER
     Route: 048
     Dates: start: 20180523, end: 20181010

REACTIONS (3)
  - Hallucination, tactile [None]
  - Hallucination [None]
  - Formication [None]

NARRATIVE: CASE EVENT DATE: 20181001
